FAERS Safety Report 5302106-1 (Version None)
Quarter: 2007Q2

REPORT INFORMATION
  Report Type: 
  Country: None (occurrence: None)
  Receive Date: 20070419
  Receipt Date: 20070410
  Transmission Date: 20071010
  Serious: Yes (Hospitalization)
  Sender: FDA-Public Use
  Company Number: GB-GLAXOSMITHKLINE-B0465681A

PATIENT
  Age: 27 Year
  Sex: Female

DRUGS (5)
  1. FLIXOTIDE [Suspect]
     Indication: ASTHMA
     Dosage: 2PUFF TWICE PER DAY
     Route: 055
  2. SERETIDE [Suspect]
     Indication: ASTHMA
     Dosage: 2PUFF TWICE PER DAY
     Route: 055
  3. ESOMEPRAZOLE MAGNESIUM [Concomitant]
  4. BUSCOPAN [Concomitant]
  5. GAVISCON [Concomitant]

REACTIONS (5)
  - APHONIA [None]
  - DRUG EXPOSURE DURING PREGNANCY [None]
  - GASTRIC PH DECREASED [None]
  - GASTROOESOPHAGEAL REFLUX DISEASE [None]
  - VOMITING [None]
